FAERS Safety Report 4601612-2 (Version None)
Quarter: 2005Q1

REPORT INFORMATION
  Report Type: 
  Country: None (occurrence: None)
  Receive Date: 20050308
  Receipt Date: 20050304
  Transmission Date: 20050727
  Serious: Yes (Other)
  Sender: FDA-Public Use
  Company Number: US-GLAXOSMITHKLINE-A0548382A

PATIENT
  Age: 50 Year
  Sex: Female

DRUGS (4)
  1. FLONASE [Suspect]
     Route: 045
     Dates: end: 20040101
  2. ANTI-HISTAMINE TAB [Concomitant]
  3. KEPPRA [Concomitant]
  4. QUINAPRIL [Concomitant]

REACTIONS (5)
  - CATARACT [None]
  - EPISTAXIS [None]
  - NASAL DRYNESS [None]
  - VISION BLURRED [None]
  - VISUAL ACUITY REDUCED [None]
